FAERS Safety Report 15804577 (Version 1)
Quarter: 2019Q1

REPORT INFORMATION
  Report Type: Not Available
  Country: US (occurrence: US)
  Receive Date: 20190109
  Receipt Date: 20190109
  Transmission Date: 20190417
  Serious: No
  Sender: FDA-Public Use
  Company Number: US-NEUROCRINE BIOSCIENCES INC.-2018NBI03672

PATIENT
  Sex: Female

DRUGS (1)
  1. INGREZZA [Suspect]
     Active Substance: VALBENAZINE
     Indication: TARDIVE DYSKINESIA
     Route: 048
     Dates: start: 20180926, end: 20181226

REACTIONS (3)
  - Somnolence [Unknown]
  - Dyskinesia [Unknown]
  - Malaise [Unknown]

NARRATIVE: CASE EVENT DATE: 2018
